FAERS Safety Report 13433066 (Version 1)
Quarter: 2017Q2

REPORT INFORMATION
  Report Type: Spontaneous
  Country: DE (occurrence: DE)
  Receive Date: 20170412
  Receipt Date: 20170412
  Transmission Date: 20170830
  Serious: Yes (Death, Life-Threatening, Hospitalization)
  Sender: FDA-Public Use
  Company Number: DE-TEVA-716894GER

PATIENT
  Age: 74 Year
  Sex: Male
  Weight: 120 kg

DRUGS (2)
  1. CIPROFLOXACIN. [Suspect]
     Active Substance: CIPROFLOXACIN
     Indication: URINARY TRACT INFECTION
     Route: 042
     Dates: start: 20160828, end: 20160906
  2. METAMIZOL [Suspect]
     Active Substance: METAMIZOLE SODIUM
     Indication: POSTOPERATIVE ANALGESIA
     Route: 042
     Dates: start: 20160829, end: 20160906

REACTIONS (4)
  - Leukopenia [Fatal]
  - Bone marrow failure [Fatal]
  - Drug hypersensitivity [Fatal]
  - Thrombocytopenia [Fatal]

NARRATIVE: CASE EVENT DATE: 20160906
